FAERS Safety Report 7008000-2 (Version None)
Quarter: 2010Q3

REPORT INFORMATION
  Report Type: 
  Country: None (occurrence: None)
  Receive Date: 20100922
  Receipt Date: 20100913
  Transmission Date: 20110219
  Serious: Yes (Hospitalization, Other)
  Sender: FDA-Public Use
  Company Number: PHHY2010US18474

PATIENT
  Sex: Male

DRUGS (2)
  1. EXJADE [Suspect]
     Indication: TRANSFUSION
     Dosage: 1250 MG DAILY
     Route: 048
     Dates: start: 20090928
  2. EXJADE [Suspect]
     Indication: LYMPHOPROLIFERATIVE DISORDER

REACTIONS (2)
  - UMBILICAL HERNIA REPAIR [None]
  - WOUND INFECTION [None]
